FAERS Safety Report 24919799 (Version 1)
Quarter: 2025Q1

REPORT INFORMATION
  Report Type: Report from Study
  Country: US (occurrence: US)
  Receive Date: 20250204
  Receipt Date: 20250204
  Transmission Date: 20250409
  Serious: No
  Sender: EXELIXIS
  Company Number: US-EXELIXIS-CABO-23072269

PATIENT
  Age: 76 Year
  Sex: Male

DRUGS (18)
  1. CABOMETYX [Suspect]
     Active Substance: CABOZANTINIB S-MALATE
     Indication: Renal cancer
     Dosage: 40 MG, QD
     Route: 048
     Dates: start: 20231212, end: 20240305
  2. OPDIVO [Suspect]
     Active Substance: NIVOLUMAB
     Indication: Renal cancer
  3. ALLOPURINOL [Concomitant]
     Active Substance: ALLOPURINOL
  4. ASPIRIN [Concomitant]
     Active Substance: ASPIRIN
  5. ATORVASTATIN [Concomitant]
     Active Substance: ATORVASTATIN
  6. COLACE [Concomitant]
     Active Substance: DOCUSATE SODIUM
  7. DIGOXIN [Concomitant]
     Active Substance: DIGOXIN
  8. FISH OIL [Concomitant]
     Active Substance: FISH OIL
  9. GLUCOSAMINE [Concomitant]
     Active Substance: GLUCOSAMINE
  10. IRBESARTAN [Concomitant]
     Active Substance: IRBESARTAN
  11. LEVOTHYROXINE [Concomitant]
     Active Substance: LEVOTHYROXINE
  12. METFORMIN [Concomitant]
     Active Substance: METFORMIN HYDROCHLORIDE
  13. METOPROLOL [Concomitant]
     Active Substance: METOPROLOL
  14. VITAMINS [Concomitant]
     Active Substance: VITAMINS
  15. OMEPRAZOLE [Concomitant]
     Active Substance: OMEPRAZOLE
  16. PEPTO-BISMOL [Concomitant]
     Active Substance: BISMUTH SUBSALICYLATE
  17. VITAMIN C [Concomitant]
     Active Substance: ASCORBIC ACID
  18. VITAMIN D [Concomitant]
     Active Substance: VITAMIN D NOS

REACTIONS (13)
  - Taste disorder [Recovering/Resolving]
  - Oral mucosal roughening [Recovering/Resolving]
  - Blood pressure increased [Unknown]
  - Malaise [Not Recovered/Not Resolved]
  - Hair colour changes [Unknown]
  - Diarrhoea [Not Recovered/Not Resolved]
  - Nausea [Recovering/Resolving]
  - Oral pain [Unknown]
  - Fatigue [Recovering/Resolving]
  - Oropharyngeal pain [Unknown]
  - Tooth disorder [Unknown]
  - Cough [Unknown]
  - Constipation [Unknown]

NARRATIVE: CASE EVENT DATE: 20231201
